FAERS Safety Report 17615818 (Version 1)
Quarter: 2020Q2

REPORT INFORMATION
  Report Type: Spontaneous
  Country: US (occurrence: US)
  Receive Date: 20200401
  Receipt Date: 20200401
  Transmission Date: 20200713
  Serious: No
  Sender: FDA-Public Use
  Company Number: None

PATIENT
  Age: 56 Year
  Sex: Female
  Weight: 66.6 kg

DRUGS (21)
  1. LYSINE [Concomitant]
     Active Substance: LYSINE
  2. GABAPENTIN. [Suspect]
     Active Substance: GABAPENTIN
     Indication: INTERVERTEBRAL DISC DEGENERATION
     Dosage: ?          QUANTITY:90 TABLET(S);?
     Route: 048
     Dates: start: 20050501
  3. POTASSIUM [Concomitant]
     Active Substance: POTASSIUM
  4. ACYCLOVIR. [Concomitant]
     Active Substance: ACYCLOVIR
  5. TIASIDINE [Concomitant]
  6. LORATADINE. [Concomitant]
     Active Substance: LORATADINE
  7. ATORVASTATIN [Concomitant]
     Active Substance: ATORVASTATIN
  8. AMITRIPTYLINE [Concomitant]
     Active Substance: AMITRIPTYLINE
  9. LOPRESSOR [Concomitant]
     Active Substance: METOPROLOL TARTRATE
  10. METOPROLOL. [Concomitant]
     Active Substance: METOPROLOL
  11. EFEXOR [Concomitant]
     Active Substance: VENLAFAXINE HYDROCHLORIDE
  12. PLAXIX [Concomitant]
  13. MORPHINE [Concomitant]
     Active Substance: MORPHINE
  14. CRITICAL PATITE [Concomitant]
  15. BIOTIN [Concomitant]
     Active Substance: BIOTIN
  16. IRON [Concomitant]
     Active Substance: IRON
  17. LAMICTAL [Concomitant]
     Active Substance: LAMOTRIGINE
  18. CENTRUM CHEWABLES [Concomitant]
  19. ZINC. [Concomitant]
     Active Substance: ZINC
  20. VITAMIN D3 [Concomitant]
     Active Substance: CHOLECALCIFEROL
  21. PROBIOTIC [Concomitant]
     Active Substance: PROBIOTICS NOS

REACTIONS (4)
  - Tooth loss [None]
  - Dry mouth [None]
  - Lip pain [None]
  - Dental caries [None]

NARRATIVE: CASE EVENT DATE: 20191204
